FAERS Safety Report 20994891 (Version 1)
Quarter: 2022Q2

REPORT INFORMATION
  Report Type: Spontaneous
  Country: US (occurrence: None)
  Receive Date: 20220622
  Receipt Date: 20220622
  Transmission Date: 20220721
  Serious: No
  Sender: FDA-Public Use
  Company Number: None

PATIENT

DRUGS (1)
  1. DOXYCYCLINE [Suspect]
     Active Substance: DOXYCYCLINE
     Route: 048

REACTIONS (5)
  - Physical product label issue [None]
  - Product availability issue [None]
  - Wrong dosage formulation [None]
  - Wrong product stored [None]
  - Intercepted product dispensing error [None]
